FAERS Safety Report 17197337 (Version 1)
Quarter: 2019Q4

REPORT INFORMATION
  Report Type: Spontaneous
  Country: CZ (occurrence: CZ)
  Receive Date: 20191224
  Receipt Date: 20191224
  Transmission Date: 20200122
  Serious: Yes (Life-Threatening, Hospitalization, Other)
  Sender: FDA-Public Use
  Company Number: CZ-ELI_LILLY_AND_COMPANY-CZ201912011458

PATIENT
  Age: 59 Year
  Sex: Male
  Weight: 106 kg

DRUGS (1)
  1. ERBITUX [Suspect]
     Active Substance: CETUXIMAB
     Indication: RECTAL CANCER
     Dosage: 100 MG, UNK
     Route: 042
     Dates: start: 20191128, end: 20191128

REACTIONS (13)
  - Anaphylactic shock [Recovered/Resolved]
  - Angina pectoris [Recovered/Resolved]
  - Hypotension [Recovered/Resolved]
  - Skin test positive [Recovered/Resolved]
  - Bronchospasm [Recovered/Resolved]
  - Cyanosis central [Recovered/Resolved]
  - Tachycardia [Recovered/Resolved]
  - Seizure [Recovered/Resolved]
  - Stridor [Recovered/Resolved]
  - Oxygen saturation immeasurable [Recovered/Resolved]
  - Dyspnoea [Recovered/Resolved]
  - Urticaria [Recovered/Resolved]
  - Akathisia [Recovered/Resolved]

NARRATIVE: CASE EVENT DATE: 20191128
